FAERS Safety Report 10928324 (Version 1)
Quarter: 2015Q1

REPORT INFORMATION
  Report Type: Spontaneous
  Country: FR (occurrence: FR)
  Receive Date: 20150319
  Receipt Date: 20150319
  Transmission Date: 20150721
  Serious: Yes (Other)
  Sender: FDA-Public Use
  Company Number: FR-JNJFOC-20150305565

PATIENT
  Sex: Male

DRUGS (9)
  1. ATARAX [Concomitant]
     Active Substance: HYDROXYZINE\HYDROXYZINE HYDROCHLORIDE
     Dosage: 300 (UNITS NOT REPORTED)??1 IN THE EVENING
     Route: 065
  2. HALDOL [Suspect]
     Active Substance: HALOPERIDOL
     Indication: PRODUCT USED FOR UNKNOWN INDICATION
     Route: 065
  3. PROZAC [Concomitant]
     Active Substance: FLUOXETINE HYDROCHLORIDE
     Dosage: 20 (UNITS NOT REPORTED) 1 IN THE MORNING AND 1 IN THE EVENING
     Route: 065
  4. AOTAL [Concomitant]
     Active Substance: ACAMPROSATE CALCIUM
     Dosage: TWICE IN THE MORNING, 1 AT MIDDAY AND 1 IN THE EVENING
     Route: 065
  5. TINSET [Concomitant]
     Active Substance: OXATOMIDE
     Dosage: 20 (UNITS UNSPECIFIED) 1 IN THE MORNING AND 1 IN THE EVENING
     Route: 065
  6. HALDOL [Suspect]
     Active Substance: HALOPERIDOL
     Indication: PRODUCT USED FOR UNKNOWN INDICATION
     Route: 065
  7. LEPTICUR [Concomitant]
     Active Substance: TROPATEPINE HYDROCHLORIDE
     Dosage: 1 IN THE MORNING AND 1 AT MIDDAY
     Route: 065
  8. ROHYPNOL [Concomitant]
     Active Substance: FLUNITRAZEPAM
     Dosage: TWICE IN THE EVENING
     Route: 065
  9. TERCIAN [Concomitant]
     Active Substance: CYAMEMAZINE
     Dosage: 100 (UNITS NOT REPORTED)??1 IN THE EVENING
     Route: 065

REACTIONS (1)
  - Homicide [Unknown]
